FAERS Safety Report 8062131-7 (Version None)
Quarter: 2012Q1

REPORT INFORMATION
  Report Type: 
  Country: None (occurrence: None)
  Receive Date: 20120120
  Receipt Date: 20120120
  Transmission Date: 20120608
  Serious: Yes (Other)
  Sender: FDA-Public Use
  Company Number: None

PATIENT
  Age: 63 Year
  Sex: Male
  Weight: 74.3 kg

DRUGS (2)
  1. MINOCYCLINE HCL [Suspect]
     Dosage: MG BID PO
     Route: 048
     Dates: start: 20110726, end: 20110811
  2. AMOXICILLIN AND CLAVULANATE POTASSIUM [Suspect]
     Dosage: MG BID PO
     Route: 048
     Dates: start: 20110726, end: 20110811

REACTIONS (1)
  - ACUTE HEPATIC FAILURE [None]
